FAERS Safety Report 5170024-8 (Version None)
Quarter: 2006Q4

REPORT INFORMATION
  Report Type: 
  Country: None (occurrence: None)
  Receive Date: 20061212
  Receipt Date: 20061201
  Transmission Date: 20070319
  Serious: Yes (Other)
  Sender: FDA-Public Use
  Company Number: DE-ELI_LILLY_AND_COMPANY-DE200612000517

PATIENT
  Age: 71 Year
  Sex: Male

DRUGS (2)
  1. GEMZAR [Suspect]
     Indication: LUNG NEOPLASM MALIGNANT
     Dosage: 1000 MG/M2, UNK
     Route: 042
  2. ANTIEMETICS AND ANTINAUSEANTS [Concomitant]

REACTIONS (2)
  - INJECTION SITE PAIN [None]
  - THROMBOPHLEBITIS [None]
